FAERS Safety Report 14004826 (Version 3)
Quarter: 2017Q4

REPORT INFORMATION
  Report Type: Report from Study
  Country: PT (occurrence: PT)
  Receive Date: 20170922
  Receipt Date: 20171003
  Transmission Date: 20180321
  Serious: Yes (Other)
  Sender: FDA-Public Use
  Company Number: PT-GUERBET-PT-20170016

PATIENT
  Sex: Male

DRUGS (3)
  1. LIPIODOL [Suspect]
     Active Substance: ETHIODIZED OIL
     Indication: THERAPEUTIC EMBOLISATION
     Route: 013
  2. DOCETAXEL. [Concomitant]
     Active Substance: DOCETAXEL
     Indication: THERAPEUTIC EMBOLISATION
     Route: 013
  3. CHELIDONIUM MAJUS [Concomitant]
     Active Substance: CHELIDONIUM MAJUS
     Indication: THERAPEUTIC EMBOLISATION
     Route: 013

REACTIONS (2)
  - Product use in unapproved indication [Recovered/Resolved]
  - Ischaemia [Recovered/Resolved]
